FAERS Safety Report 14574386 (Version 1)
Quarter: 2018Q1

REPORT INFORMATION
  Report Type: Spontaneous
  Country: RU (occurrence: RU)
  Receive Date: 20180226
  Receipt Date: 20180226
  Transmission Date: 20180509
  Serious: Yes (Other)
  Sender: FDA-Public Use
  Company Number: RU-ASTRAZENECA-2018SE23203

PATIENT
  Age: 78 Year
  Sex: Female
  Weight: 76 kg

DRUGS (5)
  1. INDAPAMIDE. [Concomitant]
     Active Substance: INDAPAMIDE
  2. NIFEDIPINE. [Concomitant]
     Active Substance: NIFEDIPINE
  3. BRILINTA [Suspect]
     Active Substance: TICAGRELOR
     Indication: ANGINA UNSTABLE
     Route: 048
     Dates: start: 20180206
  4. SIMGAL [Concomitant]
     Active Substance: SIMVASTATIN
  5. ENALAPRIL [Concomitant]
     Active Substance: ENALAPRIL

REACTIONS (4)
  - Angina unstable [Not Recovered/Not Resolved]
  - Intentional product misuse [Not Recovered/Not Resolved]
  - Blood pressure increased [Not Recovered/Not Resolved]
  - Skin discolouration [Recovering/Resolving]

NARRATIVE: CASE EVENT DATE: 20180220
